FAERS Safety Report 4382761-3 (Version None)
Quarter: 2004Q2

REPORT INFORMATION
  Report Type: 
  Country: None (occurrence: None)
  Receive Date: 20040603
  Receipt Date: 20040315
  Transmission Date: 20050107
  Serious: Yes (Hospitalization)
  Sender: FDA-Public Use
  Company Number: 200411982US

PATIENT
  Age: 41 Year
  Sex: Female

DRUGS (10)
  1. ENOXAPARIN SODIUM [Suspect]
     Indication: DEEP VEIN THROMBOSIS
     Dosage: 100 MG QD
     Dates: start: 20030301
  2. FENTANYL (DURAGESIC) [Concomitant]
  3. PARACETAMOL, HYDROCODONE BITARTRATE (LORCET) [Concomitant]
  4. PROPRANOLOL HYDROCHLORIDE (INDERAL LA) [Concomitant]
  5. DISOPYRAMIDE PHOSPHATE (NORPACE CR) [Concomitant]
  6. METAXALONE (SKELAXIN) [Concomitant]
  7. VALIUM [Concomitant]
  8. DILTIAZEM HYDROCHLORIDE [Concomitant]
  9. NEURONTIN [Concomitant]
  10. LEXAPRO [Concomitant]

REACTIONS (1)
  - PULMONARY EMBOLISM [None]
